FAERS Safety Report 11749656 (Version 1)
Quarter: 2015Q4

REPORT INFORMATION
  Report Type: Spontaneous
  Country: US (occurrence: US)
  Receive Date: 20151118
  Receipt Date: 20151118
  Transmission Date: 20160304
  Serious: Yes (Life-Threatening, Hospitalization, Congenital Anomaly, Other)
  Sender: FDA-Public Use
  Company Number: US-GLAXOSMITHKLINE-K201305216

PATIENT
  Sex: Male
  Weight: 3.22 kg

DRUGS (14)
  1. NITROFURANTOIN. [Suspect]
     Active Substance: NITROFURANTOIN
     Route: 064
  2. OLOPATADINE HYDROCHLORIDE. [Suspect]
     Active Substance: OLOPATADINE HYDROCHLORIDE
     Route: 064
  3. TOPAMAX [Suspect]
     Active Substance: TOPIRAMATE
     Indication: MIGRAINE
     Route: 064
     Dates: start: 2010, end: 201011
  4. IBUPROFEN. [Suspect]
     Active Substance: IBUPROFEN
     Route: 064
  5. CHERACOL [Suspect]
     Active Substance: CODEINE PHOSPHATE\GUAIFENESIN
     Route: 064
  6. FLUTICASONE PROPIONATE. [Suspect]
     Active Substance: FLUTICASONE PROPIONATE
     Route: 064
  7. AMOXYCILLIN [Suspect]
     Active Substance: AMOXICILLIN
     Route: 064
  8. SUMATRIPTAN SUCCINATE. [Suspect]
     Active Substance: SUMATRIPTAN SUCCINATE
     Route: 064
  9. PRENATAL VITAMINS [Suspect]
     Active Substance: VITAMINS
     Route: 064
  10. CETIRIZINE HYDROCHLORIDE. [Suspect]
     Active Substance: CETIRIZINE HYDROCHLORIDE
     Route: 064
  11. FLEXERIL [Suspect]
     Active Substance: CYCLOBENZAPRINE HYDROCHLORIDE
     Indication: PERIPHERAL NERVE LESION
     Route: 064
  12. AZITHROMYCIN [Suspect]
     Active Substance: AZITHROMYCIN ANHYDROUS
     Route: 064
  13. VICODIN [Suspect]
     Active Substance: ACETAMINOPHEN\HYDROCODONE BITARTRATE
     Route: 064
  14. NAPROXEN. [Suspect]
     Active Substance: NAPROXEN
     Route: 064

REACTIONS (1)
  - Gastrooesophageal reflux disease [Recovering/Resolving]
